FAERS Safety Report 24228806 (Version 5)
Quarter: 2024Q3

REPORT INFORMATION
  Report Type: Spontaneous
  Country: CA (occurrence: CA)
  Receive Date: 20240820
  Receipt Date: 20240902
  Transmission Date: 20241016
  Serious: Yes (Hospitalization, Other)
  Sender: PFIZER
  Company Number: CA-PFIZER INC-202400236114

PATIENT
  Age: 74 Year
  Sex: Female

DRUGS (4)
  1. SULFASALAZINE [Suspect]
     Active Substance: SULFASALAZINE
     Indication: Rheumatoid arthritis
     Dosage: 500 MG, 4X/DAY
     Route: 065
  2. IMURAN [Concomitant]
     Active Substance: AZATHIOPRINE
     Dosage: 1 DF
  3. METHOTREXATE [Concomitant]
     Active Substance: METHOTREXATE
     Dosage: 1 DF
  4. PLAQUENIL [Concomitant]
     Active Substance: HYDROXYCHLOROQUINE SULFATE
     Dosage: 400 MG, 1X/DAY

REACTIONS (13)
  - Vertigo [Unknown]
  - Ear congestion [Unknown]
  - Spinal fracture [Unknown]
  - Fall [Unknown]
  - Condition aggravated [Unknown]
  - Rash pruritic [Unknown]
  - Blister [Unknown]
  - Pain [Unknown]
  - Herpes zoster [Recovering/Resolving]
  - Breast pain [Unknown]
  - Axillary pain [Unknown]
  - Pain in extremity [Unknown]
  - Back pain [Unknown]

NARRATIVE: CASE EVENT DATE: 20230101
